FAERS Safety Report 7429713-4 (Version None)
Quarter: 2011Q2

REPORT INFORMATION
  Report Type: 
  Country: None (occurrence: None)
  Receive Date: 20110421
  Receipt Date: 20110413
  Transmission Date: 20111010
  Serious: Yes (Life-Threatening, Hospitalization)
  Sender: FDA-Public Use
  Company Number: DE-BRISTOL-MYERS SQUIBB COMPANY-15679798

PATIENT
  Age: 52 Year
  Sex: Male
  Weight: 50 kg

DRUGS (6)
  1. CISPLATIN [Suspect]
     Indication: HEAD AND NECK CANCER
     Route: 042
     Dates: start: 20110314
  2. FLUOROURACIL [Suspect]
     Indication: HEAD AND NECK CANCER
     Dosage: CONTINUOUS INFUSION FROM DAY 1 TO DAY 4
     Route: 042
     Dates: start: 20110314
  3. PANTOZOL [Concomitant]
     Indication: PROPHYLAXIS AGAINST GASTROINTESTINAL ULCER
     Dosage: 1 DF = 40 UNITS NOS
     Route: 048
     Dates: start: 20050615
  4. BERODUAL [Concomitant]
     Indication: ASTHMA
     Dosage: BERODUAL SPRAY
  5. LEVOTHYROXINE SODIUM [Concomitant]
     Indication: HYPERTHYROIDISM
     Route: 048
     Dates: start: 20090615
  6. CETUXIMAB [Suspect]
     Indication: HEAD AND NECK CANCER
     Dosage: FOLLOWED BY 250MG/M2 ONCE A WEEK (1 IN 1 W)
     Route: 042
     Dates: start: 20110314

REACTIONS (4)
  - ELECTROCARDIOGRAM T WAVE INVERSION [None]
  - HYPOKALAEMIA [None]
  - ELECTROCARDIOGRAM QT PROLONGED [None]
  - INFECTION [None]
